FAERS Safety Report 5776256-X (Version None)
Quarter: 2008Q2

REPORT INFORMATION
  Report Type: 
  Country: None (occurrence: None)
  Receive Date: 20080616
  Receipt Date: 20080609
  Transmission Date: 20081010
  Serious: Yes (Hospitalization)
  Sender: FDA-Public Use
  Company Number: 163-21880-08060545

PATIENT
  Age: 65 Year
  Sex: Female

DRUGS (1)
  1. REVLIMID [Suspect]
     Indication: MYELODYSPLASTIC SYNDROME
     Dosage: 10 MG, 1 IN 1 D, ORAL
     Route: 048
     Dates: start: 20080418, end: 20080502

REACTIONS (5)
  - LOCAL SWELLING [None]
  - OEDEMA PERIPHERAL [None]
  - ORAL DISORDER [None]
  - PRURITUS GENERALISED [None]
  - RASH [None]
